FAERS Safety Report 12484701 (Version 1)
Quarter: 2016Q2

REPORT INFORMATION
  Report Type: Spontaneous
  Country: US (occurrence: US)
  Receive Date: 20160621
  Receipt Date: 20160621
  Transmission Date: 20160815
  Serious: Yes (Other)
  Sender: FDA-Public Use
  Company Number: US-SA-2016SA112602

PATIENT
  Age: 51 Year
  Sex: Male

DRUGS (29)
  1. ASPIRIN. [Concomitant]
     Active Substance: ASPIRIN
  2. HYDROXYZINE [Concomitant]
     Active Substance: HYDROXYZINE\HYDROXYZINE HYDROCHLORIDE
  3. UROXATRAL [Concomitant]
     Active Substance: ALFUZOSIN HYDROCHLORIDE
  4. ALBUTEROL. [Concomitant]
     Active Substance: ALBUTEROL
  5. PRILOSEC [Concomitant]
     Active Substance: OMEPRAZOLE MAGNESIUM
  6. AMBIEN [Concomitant]
     Active Substance: ZOLPIDEM TARTRATE
  7. CETROTIDE [Concomitant]
     Active Substance: CETRORELIX ACETATE
  8. RANITIDINE. [Concomitant]
     Active Substance: RANITIDINE
  9. XANAX [Concomitant]
     Active Substance: ALPRAZOLAM
  10. OXYCONTIN [Concomitant]
     Active Substance: OXYCODONE HYDROCHLORIDE
  11. AUBAGIO [Suspect]
     Active Substance: TERIFLUNOMIDE
     Indication: MULTIPLE SCLEROSIS
     Route: 048
     Dates: start: 20160405, end: 201605
  12. AMPYRA [Suspect]
     Active Substance: DALFAMPRIDINE
     Indication: GAIT DISTURBANCE
     Route: 048
     Dates: start: 2010
  13. VITAMIN D [Concomitant]
     Active Substance: CHOLECALCIFEROL
  14. TERAZOSIN [Concomitant]
     Active Substance: TERAZOSIN\TERAZOSIN HYDROCHLORIDE
  15. OLANZAPINE. [Concomitant]
     Active Substance: OLANZAPINE
  16. FUROSEMIDE. [Concomitant]
     Active Substance: FUROSEMIDE
  17. LYRICA [Suspect]
     Active Substance: PREGABALIN
     Route: 065
  18. TRICOR [Concomitant]
     Active Substance: FENOFIBRATE
  19. CRESTOR [Concomitant]
     Active Substance: ROSUVASTATIN CALCIUM
  20. TROSPIUM [Concomitant]
     Active Substance: TROSPIUM
  21. FISH OIL [Concomitant]
     Active Substance: FISH OIL
  22. PLAVIX [Concomitant]
     Active Substance: CLOPIDOGREL BISULFATE
  23. PROAIR HFA [Concomitant]
     Active Substance: ALBUTEROL SULFATE
  24. ATENOLOL. [Concomitant]
     Active Substance: ATENOLOL
  25. ZANAFLEX [Suspect]
     Active Substance: TIZANIDINE HYDROCHLORIDE
     Route: 065
  26. HOMATROPINE/HYDROCODONE [Concomitant]
  27. CYMBALTA [Concomitant]
     Active Substance: DULOXETINE HYDROCHLORIDE
  28. NITROFURANTOIN. [Concomitant]
     Active Substance: NITROFURANTOIN
  29. OXYCODONE [Concomitant]
     Active Substance: OXYCODONE

REACTIONS (8)
  - Condition aggravated [Not Recovered/Not Resolved]
  - Nausea [Recovering/Resolving]
  - Pain [Not Recovered/Not Resolved]
  - Muscle spasms [Not Recovered/Not Resolved]
  - Fatigue [Recovering/Resolving]
  - Hypersomnia [Recovering/Resolving]
  - Delirium [Recovering/Resolving]
  - Thinking abnormal [Recovering/Resolving]

NARRATIVE: CASE EVENT DATE: 2016
